FAERS Safety Report 7973012-9 (Version None)
Quarter: 2011Q4

REPORT INFORMATION
  Report Type: 
  Country: None (occurrence: None)
  Receive Date: 20111213
  Receipt Date: 20111202
  Transmission Date: 20120403
  Serious: Yes (Hospitalization)
  Sender: FDA-Public Use
  Company Number: FR-BRISTOL-MYERS SQUIBB COMPANY-16271934

PATIENT
  Age: 78 Year
  Sex: Female

DRUGS (7)
  1. ALLOPURINOL [Concomitant]
  2. ACETAMINOPHEN [Concomitant]
  3. ARANESP [Concomitant]
  4. IRBESARTAN [Suspect]
     Indication: HYPERTENSION
     Route: 048
  5. MEMANTINE HYDROCHLORIDE [Concomitant]
  6. DURAGESIC-100 [Suspect]
     Indication: OSTEOARTHRITIS
     Route: 062
  7. EXELON [Concomitant]

REACTIONS (4)
  - ISCHAEMIC STROKE [None]
  - DISTURBANCE IN ATTENTION [None]
  - HYPOXIA [None]
  - BRADYPNOEA [None]
